FAERS Safety Report 16520669 (Version 1)
Quarter: 2019Q3

REPORT INFORMATION
  Report Type: Spontaneous
  Country: DE (occurrence: DE)
  Receive Date: 20190702
  Receipt Date: 20190702
  Transmission Date: 20191004
  Serious: Yes (Hospitalization)
  Sender: FDA-Public Use
  Company Number: DE-ELI_LILLY_AND_COMPANY-DE201906012616

PATIENT
  Age: 34 Year
  Sex: Female
  Weight: 100 kg

DRUGS (3)
  1. TAVOR (LORAZEPAM) [Suspect]
     Active Substance: LORAZEPAM
     Indication: PRODUCT USED FOR UNKNOWN INDICATION
     Dosage: UNK UNK, UNKNOWN
     Route: 060
     Dates: end: 200704
  2. CYMBALTA [Suspect]
     Active Substance: DULOXETINE HYDROCHLORIDE
     Indication: DEPRESSION
     Dosage: UNK UNK, UNKNOWN
     Route: 048
     Dates: start: 20060630, end: 20070329
  3. FRAXIPARIN [Suspect]
     Active Substance: NADROPARIN CALCIUM
     Indication: PRODUCT USED FOR UNKNOWN INDICATION
     Dosage: UNK, UNKNOWN
     Route: 065
     Dates: start: 20070717

REACTIONS (8)
  - Vaginal haemorrhage [Unknown]
  - Bacterial test positive [Unknown]
  - Uterine haematoma [Unknown]
  - Premature labour [Recovered/Resolved]
  - Exposure during pregnancy [Recovered/Resolved]
  - Placental insufficiency [Unknown]
  - Oligohydramnios [Unknown]
  - Haemorrhage in pregnancy [Unknown]

NARRATIVE: CASE EVENT DATE: 2007
